APPROVED DRUG PRODUCT: VORICONAZOLE
Active Ingredient: VORICONAZOLE
Strength: 200MG/VIAL
Dosage Form/Route: POWDER;INTRAVENOUS
Application: A210849 | Product #001
Applicant: PHARMOBEDIENT CONSULTING LLC
Approved: Oct 11, 2022 | RLD: No | RS: No | Type: DISCN